FAERS Safety Report 5526347-3 (Version None)
Quarter: 2007Q4

REPORT INFORMATION
  Report Type: 
  Country: None (occurrence: None)
  Receive Date: 20071127
  Receipt Date: 20071119
  Transmission Date: 20080405
  Serious: Yes (Other)
  Sender: FDA-Public Use
  Company Number: US-ASTRAZENECA-2007UW03285

PATIENT
  Age: 83 Year
  Sex: Female
  Weight: 72.6 kg

DRUGS (5)
  1. ARIMIDEX [Suspect]
     Indication: BREAST CANCER FEMALE
     Route: 048
     Dates: start: 20070130, end: 20070601
  2. CENTRUM SILVER [Concomitant]
  3. ASPIRIN [Concomitant]
  4. VITAMIN D [Concomitant]
  5. CALCIUM [Concomitant]

REACTIONS (9)
  - ASTHENIA [None]
  - BLOOD CALCIUM DECREASED [None]
  - DYSSTASIA [None]
  - FALL [None]
  - LOSS OF CONTROL OF LEGS [None]
  - MUSCULAR WEAKNESS [None]
  - OSTEOPENIA [None]
  - PAIN [None]
  - WEIGHT INCREASED [None]
